FAERS Safety Report 21994715 (Version 1)
Quarter: 2023Q1

REPORT INFORMATION
  Report Type: Spontaneous
  Country: US (occurrence: US)
  Receive Date: 20230215
  Receipt Date: 20230215
  Transmission Date: 20230418
  Serious: No
  Sender: FDA-Public Use
  Company Number: US-ABBVIE-4268035

PATIENT
  Weight: 74.842 kg

DRUGS (1)
  1. SYNTHROID [Suspect]
     Active Substance: LEVOTHYROXINE SODIUM
     Indication: Product used for unknown indication
     Route: 065

REACTIONS (14)
  - Tremor [Not Recovered/Not Resolved]
  - Osteopenia [Unknown]
  - Constipation [Unknown]
  - Palpitations [Unknown]
  - Diarrhoea [Unknown]
  - Weight decreased [Unknown]
  - Illness [Unknown]
  - Increased appetite [Unknown]
  - Mood swings [Unknown]
  - Irritable bowel syndrome [Unknown]
  - Fatigue [Unknown]
  - Nasopharyngitis [Unknown]
  - Anxiety [Unknown]
  - Gastrooesophageal reflux disease [Unknown]
